FAERS Safety Report 7114507-X (Version None)
Quarter: 2010Q4

REPORT INFORMATION
  Report Type: 
  Country: None (occurrence: None)
  Receive Date: 20101119
  Receipt Date: 20101108
  Transmission Date: 20110411
  Serious: Yes (Other)
  Sender: FDA-Public Use
  Company Number: NL-GILEAD-2010-0033279

PATIENT
  Age: 53 Year
  Sex: Male

DRUGS (3)
  1. VIREAD [Suspect]
     Indication: HIV INFECTION
     Dates: start: 20030901
  2. DIDANOSINE [Concomitant]
     Indication: HIV INFECTION
     Dates: start: 20030901
  3. LOPINAVIR W/RITONAVIR [Concomitant]
     Indication: HIV INFECTION
     Dates: start: 20030901

REACTIONS (3)
  - CD4 LYMPHOCYTES DECREASED [None]
  - FANCONI SYNDROME ACQUIRED [None]
  - OSTEOMALACIA [None]
